FAERS Safety Report 8153482-6 (Version None)
Quarter: 2012Q1

REPORT INFORMATION
  Report Type: 
  Country: None (occurrence: None)
  Receive Date: 20120221
  Receipt Date: 20120216
  Transmission Date: 20120608
  Serious: Yes (Death)
  Sender: FDA-Public Use
  Company Number: US-GILEAD-2012-0049035

PATIENT
  Sex: Female

DRUGS (4)
  1. LETAIRIS [Suspect]
     Indication: PULMONARY HYPERTENSION
     Dosage: 5 MG, UNK
     Route: 048
     Dates: start: 20070101
  2. REMODULIN [Concomitant]
  3. REVATIO [Concomitant]
  4. LETAIRIS [Suspect]
     Indication: RHEUMATOID ARTHRITIS

REACTIONS (1)
  - DEATH [None]
